FAERS Safety Report 6189673-3 (Version None)
Quarter: 2009Q2

REPORT INFORMATION
  Report Type: 
  Country: None (occurrence: None)
  Receive Date: 20090512
  Receipt Date: 20090512
  Transmission Date: 20091009
  Serious: No
  Sender: FDA-Public Use
  Company Number: None

PATIENT
  Age: 62 Year
  Sex: Male
  Weight: 88.4514 kg

DRUGS (3)
  1. METOPROLOL SUCCINATE [Suspect]
     Indication: ARRHYTHMIA
     Dosage: 50 MG DAILY PO
     Route: 048
     Dates: start: 20090501, end: 20090510
  2. METOPROLOL SUCCINATE [Suspect]
     Indication: BLOOD PRESSURE
     Dosage: 50 MG DAILY PO
     Route: 048
     Dates: start: 20090501, end: 20090510
  3. TOPROL-XL [Suspect]

REACTIONS (2)
  - HEART RATE ABNORMAL [None]
  - PRODUCT SUBSTITUTION ISSUE [None]
